FAERS Safety Report 19092294 (Version 1)
Quarter: 2021Q2

REPORT INFORMATION
  Report Type: Spontaneous
  Country: US (occurrence: US)
  Receive Date: 20210405
  Receipt Date: 20210405
  Transmission Date: 20210717
  Serious: No
  Sender: FDA-Public Use
  Company Number: US-SA-2021SA068348

PATIENT
  Age: 80 Year
  Sex: Female

DRUGS (5)
  1. PLAVIX [Suspect]
     Active Substance: CLOPIDOGREL BISULFATE
     Dosage: UNK
     Route: 048
     Dates: end: 202102
  2. ASPIRIN [ACETYLSALICYLIC ACID;ASCORBIC ACID] [Concomitant]
     Active Substance: ACETAMINOPHEN\ASCORBIC ACID
  3. LISINOPRIL. [Concomitant]
     Active Substance: LISINOPRIL
  4. COREG [Concomitant]
     Active Substance: CARVEDILOL
  5. CLONIDINE. [Concomitant]
     Active Substance: CLONIDINE

REACTIONS (10)
  - Cough [Unknown]
  - Wheezing [Unknown]
  - Urine output decreased [Unknown]
  - Gait disturbance [Unknown]
  - Condition aggravated [Unknown]
  - Fatigue [Unknown]
  - Bronchospasm [Unknown]
  - Taste disorder [Unknown]
  - Chromaturia [Unknown]
  - Dyspnoea [Unknown]
